FAERS Safety Report 19485457 (Version 3)
Quarter: 2022Q1

REPORT INFORMATION
  Report Type: Other
  Country: US (occurrence: None)
  Receive Date: 20210702
  Receipt Date: 20220112
  Transmission Date: 20220423
  Serious: Yes (Other)
  Sender: FDA-Public Use
  Company Number: US-ROCHE-2859717

PATIENT

DRUGS (4)
  1. RITUXIMAB [Suspect]
     Active Substance: RITUXIMAB
     Indication: Diffuse large B-cell lymphoma
     Route: 065
  2. RITUXIMAB [Suspect]
     Active Substance: RITUXIMAB
     Indication: Non-Hodgkin^s lymphoma
  3. NARATUXIMAB EMTANSINE [Suspect]
     Active Substance: NARATUXIMAB EMTANSINE
     Indication: Diffuse large B-cell lymphoma
     Route: 065
  4. NARATUXIMAB EMTANSINE [Suspect]
     Active Substance: NARATUXIMAB EMTANSINE
     Indication: Non-Hodgkin^s lymphoma

REACTIONS (8)
  - Neutropenia [Unknown]
  - Lymphopenia [Unknown]
  - Thrombocytopenia [Unknown]
  - Hepatitis toxic [Unknown]
  - Leukopenia [Unknown]
  - Pneumonia [Unknown]
  - Febrile neutropenia [Unknown]
  - General physical health deterioration [Unknown]
